FAERS Safety Report 25140567 (Version 4)
Quarter: 2025Q2

REPORT INFORMATION
  Report Type: Report from Study
  Country: ES (occurrence: ES)
  Receive Date: 20250331
  Receipt Date: 20250515
  Transmission Date: 20250717
  Serious: Yes (Death, Hospitalization)
  Sender: SANOFI AVENTIS
  Company Number: ES-SA-2025SA070594

PATIENT
  Age: 61 Year
  Sex: Female

DRUGS (14)
  1. ISATUXIMAB [Suspect]
     Active Substance: ISATUXIMAB
     Indication: Plasma cell myeloma refractory
     Dosage: 10 MG/KG, BIW
     Dates: start: 20240704, end: 20240718
  2. ISATUXIMAB [Suspect]
     Active Substance: ISATUXIMAB
     Dosage: 10 MG/KG, BIW
     Dates: start: 20240801, end: 20240814
  3. ISATUXIMAB [Suspect]
     Active Substance: ISATUXIMAB
     Dosage: 10 MG/KG, BIW
     Dates: start: 20241121, end: 20241205
  4. POMALIDOMIDE [Suspect]
     Active Substance: POMALIDOMIDE
     Indication: Plasma cell myeloma refractory
     Dosage: 4 MG, QD
     Dates: start: 20240704, end: 20240724
  5. POMALIDOMIDE [Suspect]
     Active Substance: POMALIDOMIDE
     Dosage: 4 MG, QD
     Dates: start: 20240801, end: 20240821
  6. POMALIDOMIDE [Suspect]
     Active Substance: POMALIDOMIDE
     Dosage: 4 MG, QD
     Dates: start: 20241121, end: 20241211
  7. DEXAMETHASONE [Suspect]
     Active Substance: DEXAMETHASONE
     Indication: Plasma cell myeloma refractory
     Dosage: 40 MG, QW
     Dates: start: 20240801, end: 20240822
  8. DEXAMETHASONE [Suspect]
     Active Substance: DEXAMETHASONE
     Dosage: 40 MG, QW
     Dates: start: 20241121, end: 20241212
  9. FENTANYL [Concomitant]
     Active Substance: FENTANYL
     Indication: Prophylaxis
     Dates: start: 20230914
  10. ASPIRIN [Concomitant]
     Active Substance: ASPIRIN
     Indication: Prophylaxis
     Dates: start: 20230518
  11. ACYCLOVIR [Concomitant]
     Active Substance: ACYCLOVIR
     Indication: Prophylaxis
     Dates: start: 20220225
  12. CHOLECALCIFEROL [Concomitant]
     Active Substance: CHOLECALCIFEROL
     Indication: Osteopenia
     Dates: start: 20230818
  13. CALCIUM PIDOLATE [Concomitant]
     Active Substance: CALCIUM PIDOLATE
     Indication: Rheumatoid arthritis
     Dates: start: 20230818
  14. RABEPRAZOLE SODIUM [Concomitant]
     Active Substance: RABEPRAZOLE SODIUM
     Indication: Prophylaxis
     Dates: start: 20181211

REACTIONS (2)
  - Respiratory tract infection viral [Fatal]
  - Hypokalaemia [Recovered/Resolved]

NARRATIVE: CASE EVENT DATE: 20241209
